FAERS Safety Report 8436355-0 (Version None)
Quarter: 2012Q2

REPORT INFORMATION
  Report Type: 
  Country: None (occurrence: None)
  Receive Date: 20120614
  Receipt Date: 20120606
  Transmission Date: 20120825
  Serious: Yes (Other)
  Sender: FDA-Public Use
  Company Number: US-ROCHE-783829

PATIENT
  Sex: Male
  Weight: 77.18 kg

DRUGS (1)
  1. ACCUTANE [Suspect]
     Indication: ACNE
     Route: 065
     Dates: start: 19841115, end: 19850307

REACTIONS (6)
  - SUICIDAL IDEATION [None]
  - INFLAMMATORY BOWEL DISEASE [None]
  - STRESS [None]
  - GASTROINTESTINAL DISORDER [None]
  - DEPRESSION [None]
  - COLITIS ULCERATIVE [None]
